FAERS Safety Report 10924100 (Version 2)
Quarter: 2015Q2

REPORT INFORMATION
  Report Type: Spontaneous
  Country: ES (occurrence: ES)
  Receive Date: 20150318
  Receipt Date: 20150406
  Transmission Date: 20150821
  Serious: Yes (Other)
  Sender: FDA-Public Use
  Company Number: ES-AMGEN-ESPSP2015023589

PATIENT
  Age: 65 Year
  Sex: Female

DRUGS (3)
  1. VITAMIN D                          /00107901/ [Concomitant]
     Active Substance: ERGOCALCIFEROL
  2. CALCIUM [Concomitant]
     Active Substance: CALCIUM
  3. PROLIA [Suspect]
     Active Substance: DENOSUMAB
     Indication: OSTEOPOROSIS
     Dosage: UNK UNK, Q6MO
     Route: 065
     Dates: start: 201204

REACTIONS (1)
  - Upper limb fracture [Unknown]

NARRATIVE: CASE EVENT DATE: 20141114
